FAERS Safety Report 7537494-9 (Version None)
Quarter: 2011Q2

REPORT INFORMATION
  Report Type: 
  Country: None (occurrence: None)
  Receive Date: 20110603
  Receipt Date: 20110518
  Transmission Date: 20111010
  Serious: Yes (Hospitalization, Other)
  Sender: FDA-Public Use
  Company Number: 2011MA006143

PATIENT
  Age: 58 Year
  Sex: Female

DRUGS (5)
  1. METOCLOPRAMIDE [Suspect]
     Dosage: 20 MG, RTL
     Route: 054
  2. TEMAZEPAM [Concomitant]
  3. PIPAMPERON [Concomitant]
  4. OXAZEPAM [Concomitant]
  5. BENZODIAZEPINES [Concomitant]

REACTIONS (8)
  - ANXIETY [None]
  - DYSPHORIA [None]
  - AKATHISIA [None]
  - SUICIDAL IDEATION [None]
  - INSOMNIA [None]
  - INAPPROPRIATE SCHEDULE OF DRUG ADMINISTRATION [None]
  - RESTLESSNESS [None]
  - INCORRECT DOSE ADMINISTERED [None]
